FAERS Safety Report 6153535-8 (Version None)
Quarter: 2009Q2

REPORT INFORMATION
  Report Type: 
  Country: None (occurrence: None)
  Receive Date: 20090409
  Receipt Date: 20090409
  Transmission Date: 20091009
  Serious: Yes (Death)
  Sender: FDA-Public Use
  Company Number: None

PATIENT
  Age: 51 Year
  Sex: Female
  Weight: 62.5964 kg

DRUGS (2)
  1. ASPIRIN [Suspect]
     Dosage: 81MG DAILY PO
     Route: 048
  2. IBUPROFEN [Suspect]
     Dosage: 600 MG TID PRN PO
     Route: 048

REACTIONS (4)
  - BRAIN DEATH [None]
  - BRAIN HERNIATION [None]
  - HAEMATOMA [None]
  - HAEMORRHAGE INTRACRANIAL [None]
